FAERS Safety Report 24658845 (Version 1)
Quarter: 2024Q4

REPORT INFORMATION
  Report Type: Report from Study
  Country: US (occurrence: US)
  Receive Date: 20241125
  Receipt Date: 20241125
  Transmission Date: 20250115
  Serious: Yes (Disabling)
  Sender: GILEAD
  Company Number: US-GILEAD-2024-0694849

PATIENT
  Age: 7 Year
  Sex: Female

DRUGS (1)
  1. AZTREONAM LYSINE [Suspect]
     Active Substance: AZTREONAM LYSINE
     Indication: Bacterial infection
     Dosage: 1 DOSAGE FORM, TID [INHALE 1 VIAL VIA PARI ALTERA NEBULIZER FOR 28 DAYS ON AND 28 DAYS OFF]
     Route: 055
     Dates: start: 20241120

REACTIONS (1)
  - Drug ineffective for unapproved indication [Unknown]
